FAERS Safety Report 15747151 (Version 2)
Quarter: 2019Q1

REPORT INFORMATION
  Report Type: Report from Study
  Country: None (occurrence: US)
  Receive Date: 20181220
  Receipt Date: 20190113
  Transmission Date: 20190417
  Serious: Yes (Other)
  Sender: FDA-Public Use
  Company Number: US-ABBVIE-18K-163-2597157-00

PATIENT
  Age: 43 Year
  Sex: Female
  Weight: 99.88 kg

DRUGS (2)
  1. HUMIRA [Suspect]
     Active Substance: ADALIMUMAB
     Indication: HIDRADENITIS
     Route: 058
     Dates: start: 201702, end: 20180905
  2. HUMIRA [Suspect]
     Active Substance: ADALIMUMAB
     Route: 058
     Dates: start: 20181228

REACTIONS (5)
  - Neoplasm [Unknown]
  - Polycystic ovaries [Not Recovered/Not Resolved]
  - Cyst [Recovered/Resolved]
  - Abdominal pain [Recovered/Resolved]
  - Antinuclear antibody positive [Not Recovered/Not Resolved]

NARRATIVE: CASE EVENT DATE: 2018
